FAERS Safety Report 8161220-6 (Version None)
Quarter: 2012Q1

REPORT INFORMATION
  Report Type: 
  Country: None (occurrence: None)
  Receive Date: 20120103
  Receipt Date: 20111005
  Transmission Date: 20120608
  Serious: No
  Sender: FDA-Public Use
  Company Number: AE-2011-002105

PATIENT
  Age: 45 Year
  Sex: Female

DRUGS (4)
  1. INCIVEK [Suspect]
     Dosage: (3 IN 1 D), ORAL
     Route: 048
     Dates: start: 20110924
  2. RIBAVIRIN [Concomitant]
  3. DILTIAZEM [Concomitant]
  4. PEGASYS [Concomitant]

REACTIONS (5)
  - BACK PAIN [None]
  - HEADACHE [None]
  - NAUSEA [None]
  - WEIGHT DECREASED [None]
  - INFLUENZA LIKE ILLNESS [None]
